FAERS Safety Report 16556674 (Version 2)
Quarter: 2019Q4

REPORT INFORMATION
  Report Type: Report from Study
  Country: BR (occurrence: BR)
  Receive Date: 20190711
  Receipt Date: 20191002
  Transmission Date: 20200122
  Serious: Yes (Hospitalization, Other)
  Sender: FDA-Public Use
  Company Number: PHHY2019BR121520

PATIENT
  Age: 77 Year
  Sex: Female

DRUGS (2)
  1. DUOTRAV (ALC) [Suspect]
     Active Substance: TIMOLOL MALEATE\TRAVOPROST
     Indication: VISUAL IMPAIRMENT
     Dosage: 2.5 ML, (STARTED MANY YEARS AGO)
     Route: 065
  2. INFLUENZA VACCINE [Concomitant]
     Active Substance: INFLUENZA VIRUS VACCINE
     Indication: PRODUCT USED FOR UNKNOWN INDICATION
     Dosage: STARTED LAST WEEK
     Route: 065

REACTIONS (10)
  - Malaise [Recovered/Resolved]
  - Glaucoma [Recovering/Resolving]
  - Eye disorder [Unknown]
  - Bronchitis [Recovered/Resolved]
  - Sensitivity to weather change [Unknown]
  - Influenza [Recovered/Resolved]
  - Cough [Recovered/Resolved]
  - Concomitant disease aggravated [Recovered/Resolved]
  - Wheezing [Recovered/Resolved]
  - Lung disorder [Unknown]

NARRATIVE: CASE EVENT DATE: 20180907
